FAERS Safety Report 13761672 (Version 4)
Quarter: 2020Q1

REPORT INFORMATION
  Report Type: Report from Study
  Country: CA (occurrence: CA)
  Receive Date: 20170718
  Receipt Date: 20200205
  Transmission Date: 20200409
  Serious: Yes (Hospitalization)
  Sender: FDA-Public Use
  Company Number: CA-HLSUS-2017-CA-000662

PATIENT
  Age: 65 Year
  Sex: Male

DRUGS (1)
  1. CLOZARIL [Suspect]
     Active Substance: CLOZAPINE
     Indication: SCHIZOPHRENIA
     Route: 048
     Dates: start: 20061221, end: 20170705

REACTIONS (5)
  - Electrocardiogram QT prolonged [Unknown]
  - Adenocarcinoma of colon [Unknown]
  - Dysphagia [Unknown]
  - Liver scan abnormal [Unknown]
  - Adrenal mass [Unknown]

NARRATIVE: CASE EVENT DATE: 201705
